FAERS Safety Report 10556925 (Version 1)
Quarter: 2014Q4

REPORT INFORMATION
  Report Type: Spontaneous
  Country: US (occurrence: US)
  Receive Date: 20141031
  Receipt Date: 20141031
  Transmission Date: 20150529
  Serious: No
  Sender: FDA-Public Use
  Company Number: US-BAYER-2014-161028

PATIENT
  Age: 76 Year
  Sex: Female
  Weight: 74.83 kg

DRUGS (1)
  1. ALEVE [Suspect]
     Active Substance: NAPROXEN SODIUM
     Dosage: 1 DF, QD
     Route: 048
     Dates: start: 201410

REACTIONS (3)
  - Incorrect drug administration duration [None]
  - Lymphadenopathy [Not Recovered/Not Resolved]
  - Intentional product misuse [None]

NARRATIVE: CASE EVENT DATE: 2014
